FAERS Safety Report 4427168-5 (Version None)
Quarter: 2004Q3

REPORT INFORMATION
  Report Type: 
  Country: None (occurrence: None)
  Receive Date: 20040726
  Receipt Date: 20040427
  Transmission Date: 20050211
  Serious: No
  Sender: FDA-Public Use
  Company Number: USA040466079

PATIENT
  Age: 76 Year
  Sex: Female

DRUGS (7)
  1. FORTEO [Suspect]
     Indication: OSTEOPOROSIS
     Dates: start: 20040401
  2. ZOCOR [Concomitant]
  3. HYDROCHLOROTHIAZIDE [Concomitant]
  4. ENALAPRIL MALEATE [Concomitant]
  5. LEVOXYL [Concomitant]
  6. DICLOFENAC [Concomitant]
  7. CLONAZEPAM [Concomitant]

REACTIONS (2)
  - ACCIDENTAL OVERDOSE [None]
  - INJECTION SITE HAEMORRHAGE [None]
